FAERS Safety Report 6858806-5 (Version None)
Quarter: 2010Q3

REPORT INFORMATION
  Report Type: 
  Country: None (occurrence: None)
  Receive Date: 20100719
  Receipt Date: 20080212
  Transmission Date: 20110219
  Serious: No
  Sender: FDA-Public Use
  Company Number: US-PFIZER INC-2008015668

PATIENT
  Sex: Male
  Weight: 140.6 kg

DRUGS (11)
  1. CHANTIX [Suspect]
     Indication: SMOKING CESSATION THERAPY
     Dates: start: 20070201
  2. NADOLOL [Concomitant]
  3. PAXIL [Concomitant]
  4. CRESTOR [Concomitant]
  5. SYNTHROID [Concomitant]
  6. PRILOSEC [Concomitant]
  7. ACETYLSALICYLIC ACID [Concomitant]
  8. NAVANE [Concomitant]
  9. DEPAKOTE [Concomitant]
  10. DRUG, UNSPECIFIED [Concomitant]
  11. KLONOPIN [Concomitant]

REACTIONS (1)
  - SOMNOLENCE [None]
